FAERS Safety Report 21031522 (Version 1)
Quarter: 2022Q3

REPORT INFORMATION
  Report Type: Spontaneous
  Country: US (occurrence: US)
  Receive Date: 20220701
  Receipt Date: 20220701
  Transmission Date: 20221027
  Serious: Yes (Other)
  Sender: FDA-Public Use
  Company Number: US-SUN PHARMACEUTICAL INDUSTRIES LTD-2022R1-342649

PATIENT
  Age: 29 Year
  Sex: Female

DRUGS (2)
  1. ALBUTEROL [Suspect]
     Active Substance: ALBUTEROL
     Indication: Asthma-chronic obstructive pulmonary disease overlap syndrome
     Dosage: UNK (AS NEEDED)
     Route: 065
  2. BUDESONIDE\FORMOTEROL FUMARATE [Suspect]
     Active Substance: BUDESONIDE\FORMOTEROL FUMARATE
     Indication: Asthma-chronic obstructive pulmonary disease overlap syndrome
     Dosage: UNK (BUDENOSIDE 160UG 2 PUFFS BID + FORMOTEROL 4.5UG 2 PUFFS BID)

REACTIONS (1)
  - Condition aggravated [Unknown]
